FAERS Safety Report 20477370 (Version 2)
Quarter: 2022Q1

REPORT INFORMATION
  Report Type: Spontaneous
  Country: FR (occurrence: FR)
  Receive Date: 20220215
  Receipt Date: 20220314
  Transmission Date: 20220424
  Serious: Yes (Life-Threatening, Hospitalization, Other)
  Sender: FDA-Public Use
  Company Number: FR-SUN PHARMACEUTICAL INDUSTRIES LTD-2022R1-326531

PATIENT
  Age: 38 Year
  Sex: Female

DRUGS (10)
  1. SERTRALINE [Interacting]
     Active Substance: SERTRALINE HYDROCHLORIDE
     Indication: Anxiolytic therapy
     Dosage: 50 MILLIGRAM, QD
     Route: 065
  2. SERTRALINE [Interacting]
     Active Substance: SERTRALINE HYDROCHLORIDE
     Indication: Anxiety
  3. TRAMADOL [Suspect]
     Active Substance: TRAMADOL
     Indication: Pain
     Dosage: 225 MILLIGRAM, DAILY
     Route: 065
  4. DIAZEPAM [Concomitant]
     Active Substance: DIAZEPAM
     Indication: Epilepsy
     Dosage: 1166 MILLIGRAM, DAILY
     Route: 065
  5. LANSOPRAZOLE [Concomitant]
     Active Substance: LANSOPRAZOLE
     Indication: Gastric disorder
     Dosage: 30 MILLIGRAM, DAILY
     Route: 065
  6. MELATONIN [Concomitant]
     Active Substance: MELATONIN
     Indication: Sleep disorder
     Dosage: 12 MILLIGRAM, DAILY
     Route: 065
  7. PHLOROGLUCINOL [Concomitant]
     Active Substance: PHLOROGLUCINOL
     Indication: Abdominal pain
     Dosage: 480 MILLIGRAM, DAILY
     Route: 065
  8. POLYETHYLENE GLYCOL [Concomitant]
     Active Substance: POLYETHYLENE GLYCOL
     Indication: Colonic lavage
     Dosage: UNK
     Route: 065
  9. sodiumalginate/sodiumbicarbonate [Concomitant]
     Indication: Gastric disorder
     Dosage: 3 TABLET, DAILY
     Route: 065
  10. VALPROATE SODIUM [Concomitant]
     Active Substance: VALPROATE SODIUM
     Indication: Epilepsy
     Dosage: 1250 MILLIGRAM, DAILY
     Route: 065

REACTIONS (7)
  - Serotonin syndrome [Recovered/Resolved]
  - Overdose [Recovered/Resolved]
  - Drug interaction [Unknown]
  - Liver disorder [Recovered/Resolved]
  - Oxygen saturation decreased [Recovered/Resolved]
  - Rhabdomyolysis [Recovered/Resolved]
  - Myocardial injury [Recovered/Resolved]
